FAERS Safety Report 8614493 (Version 4)
Quarter: 2014Q1

REPORT INFORMATION
  Report Type: Spontaneous
  Country: US (occurrence: US)
  Receive Date: 20120614
  Receipt Date: 20140129
  Transmission Date: 20141002
  Serious: Yes (Disabling)
  Sender: FDA-Public Use
  Company Number: US-ASTRAZENECA-2012SE35656

PATIENT
  Age: 37 Year
  Sex: Male

DRUGS (20)
  1. NEXIUM [Suspect]
     Indication: GASTROOESOPHAGEAL REFLUX DISEASE
     Route: 048
     Dates: start: 1998, end: 2005
  2. NEXIUM [Suspect]
     Indication: DYSPEPSIA
     Route: 048
     Dates: start: 1998, end: 2005
  3. NEXIUM [Suspect]
     Indication: GASTROOESOPHAGEAL REFLUX DISEASE
     Route: 048
     Dates: start: 200210
  4. NEXIUM [Suspect]
     Indication: DYSPEPSIA
     Route: 048
     Dates: start: 200210
  5. TAGAMET [Concomitant]
     Indication: GASTROOESOPHAGEAL REFLUX DISEASE
  6. TAGAMET [Concomitant]
     Indication: DYSPEPSIA
  7. TUMS [Concomitant]
     Indication: GASTROOESOPHAGEAL REFLUX DISEASE
     Dates: start: 1998, end: 2005
  8. ROLAIDS [Concomitant]
     Indication: GASTROOESOPHAGEAL REFLUX DISEASE
     Dates: start: 1998, end: 2005
  9. CENTRUM [Concomitant]
  10. FISH OIL [Concomitant]
  11. ASPIRIN [Concomitant]
  12. NORCO [Concomitant]
     Dosage: 10-325 MG
  13. METHADOSE [Concomitant]
  14. COLACE [Concomitant]
  15. PRINZIDE [Concomitant]
     Dosage: 10-12.5 MG
  16. ELAVIL [Concomitant]
  17. CELEXA [Concomitant]
  18. LARITIN [Concomitant]
  19. TESTOSTERONE [Concomitant]
  20. MYLANTA [Concomitant]
     Indication: GASTROOESOPHAGEAL REFLUX DISEASE

REACTIONS (20)
  - Hepatitis C [Unknown]
  - Osteoarthritis [Unknown]
  - Back disorder [Unknown]
  - Osteoporosis [Unknown]
  - Androgen deficiency [Unknown]
  - Arthritis [Unknown]
  - Arthropathy [Unknown]
  - Multiple fractures [Unknown]
  - Rheumatoid arthritis [Unknown]
  - Sinus disorder [Unknown]
  - Facet joint syndrome [Unknown]
  - Bone disorder [Unknown]
  - Spinal osteoarthritis [Unknown]
  - Intervertebral disc protrusion [Unknown]
  - Ligament rupture [Unknown]
  - Joint effusion [Unknown]
  - Vertebral wedging [Unknown]
  - Intervertebral disc annular tear [Unknown]
  - Lumbar spinal stenosis [Unknown]
  - Depression [Unknown]
